FAERS Safety Report 6861466-0 (Version None)
Quarter: 2010Q3

REPORT INFORMATION
  Report Type: 
  Country: None (occurrence: None)
  Receive Date: 20100715
  Receipt Date: 20100707
  Transmission Date: 20110219
  Serious: Yes (Death)
  Sender: FDA-Public Use
  Company Number: 015145

PATIENT
  Age: 91 Year
  Sex: Female

DRUGS (7)
  1. LEVETIRACETAM [Suspect]
     Indication: STATUS EPILEPTICUS
     Dosage: (2000 MG LOAD AND 3000 MG DAILY MAINTENANCE INTRAVENOUS (NOT OTHERWISE SPECIFIED)
     Route: 042
  2. BETAMETHASONE [Concomitant]
  3. ALBUTEROL [Concomitant]
  4. MANNITOL [Concomitant]
  5. ENALAPRIL [Concomitant]
  6. BECLOMETHASONE DIPROPIONATE [Concomitant]
  7. OXYGEN [Concomitant]

REACTIONS (3)
  - CONVULSION [None]
  - OFF LABEL USE [None]
  - THERAPY RESPONDER [None]
